FAERS Safety Report 12674117 (Version 3)
Quarter: 2016Q4

REPORT INFORMATION
  Report Type: Spontaneous
  Country: US (occurrence: US)
  Receive Date: 20160822
  Receipt Date: 20161111
  Transmission Date: 20170207
  Serious: No
  Sender: FDA-Public Use
  Company Number: US-PFIZER INC-2016392113

PATIENT
  Age: 72 Year
  Sex: Female
  Weight: 77 kg

DRUGS (12)
  1. VOLTAREN [Concomitant]
     Active Substance: DICLOFENAC SODIUM
     Indication: ARTHROPATHY
     Dosage: 1 %, AS NEEDED (4 TIMES DAILY )
     Route: 061
  2. METFORMIN [Concomitant]
     Active Substance: METFORMIN HYDROCHLORIDE
     Indication: DIABETES MELLITUS
     Dosage: 1000 MG, 1X/DAY (TAKES IT EVERY MORNING AND TAKING IT FOR YEARS)
  3. NEURONTIN [Concomitant]
     Active Substance: GABAPENTIN
     Dosage: 900 MG, 1X/DAY (300 MG 3 CAPSULE QHS)
     Route: 048
  4. METFORMIN [Concomitant]
     Active Substance: METFORMIN HYDROCHLORIDE
     Dosage: UNK, (IN MORNING)
  5. GABAPENTIN. [Concomitant]
     Active Substance: GABAPENTIN
     Dosage: 300 MG, UNK
  6. BABY ASPIRIN [Concomitant]
     Active Substance: ASPIRIN
     Dosage: 81 MG, UNK
  7. LYRICA [Suspect]
     Active Substance: PREGABALIN
     Indication: DIABETIC NEUROPATHY
     Dosage: 75 MG, 3X/DAY (1 CAPSULE IN THE AM, 1 CAPSULE AT SUPPER, AND 1 CAPSULE AT BED TIME)
     Route: 048
     Dates: start: 20160616
  8. GABAPENTIN. [Concomitant]
     Active Substance: GABAPENTIN
     Dosage: UNK (AT NIGHT)
  9. GLUCOPHAGE [Concomitant]
     Active Substance: METFORMIN HYDROCHLORIDE
     Dosage: 1000 MG, 1X/DAY (EVERY MORNING)
     Route: 048
  10. JANUMET [Concomitant]
     Active Substance: METFORMIN HYDROCHLORIDE\SITAGLIPTIN PHOSPHATE
     Indication: DIABETES MELLITUS
     Dosage: [METFORMIN HYDROCHLORIDE 50 MG/ SITAGLIPTIN PHOSPHATE MONOHYDRATE 1000 MG] EVERY MORNING
     Route: 048
  11. JANUMET [Concomitant]
     Active Substance: METFORMIN HYDROCHLORIDE\SITAGLIPTIN PHOSPHATE
     Dosage: [METFORMIN HYDROCHLORIDE 50 MG/ SITAGLIPTIN PHOSPHATE MONOHYDRATE 1000 MG] EVERY NIGHT
  12. GABAPENTIN. [Concomitant]
     Active Substance: GABAPENTIN
     Indication: DIABETIC NEUROPATHY
     Dosage: 900 MG, UNK

REACTIONS (5)
  - Balance disorder [Recovered/Resolved]
  - Muscular weakness [Unknown]
  - Fall [Recovered/Resolved]
  - Weight fluctuation [Recovered/Resolved]
  - Neuropathy peripheral [Unknown]
